FAERS Safety Report 18126623 (Version 1)
Quarter: 2020Q3

REPORT INFORMATION
  Report Type: Spontaneous
  Country: US (occurrence: US)
  Receive Date: 20200809
  Receipt Date: 20200809
  Transmission Date: 20201103
  Serious: Yes (Hospitalization, Other)
  Sender: FDA-Public Use
  Company Number: NVSC2020US215480

PATIENT
  Sex: Male

DRUGS (4)
  1. BOSULIF [Suspect]
     Active Substance: BOSUTINIB MONOHYDRATE
     Indication: CHRONIC MYELOID LEUKAEMIA
     Dosage: 400 MG
     Route: 065
     Dates: start: 2016
  2. BOSULIF [Suspect]
     Active Substance: BOSUTINIB MONOHYDRATE
     Dosage: 200 MG, QD
     Route: 065
     Dates: start: 2019
  3. GLEEVEC [Suspect]
     Active Substance: IMATINIB MESYLATE
     Indication: CHRONIC MYELOID LEUKAEMIA
     Dosage: 400 MG, QD
     Route: 065
     Dates: start: 2015
  4. SPRYCEL [Suspect]
     Active Substance: DASATINIB
     Indication: CHRONIC MYELOID LEUKAEMIA
     Dosage: 400 MG, QD
     Route: 065
     Dates: start: 2015

REACTIONS (8)
  - Depression [Not Recovered/Not Resolved]
  - Illness [Unknown]
  - Rash [Not Recovered/Not Resolved]
  - Aortic aneurysm [Unknown]
  - Pain in extremity [Not Recovered/Not Resolved]
  - Cardiac valve disease [Unknown]
  - Blindness [Not Recovered/Not Resolved]
  - Pulmonary oedema [Not Recovered/Not Resolved]
